FAERS Safety Report 20660863 (Version 1)
Quarter: 2022Q1

REPORT INFORMATION
  Report Type: Spontaneous
  Country: US (occurrence: US)
  Receive Date: 20220331
  Receipt Date: 20220331
  Transmission Date: 20220423
  Serious: No
  Sender: FDA-Public Use
  Company Number: US-Vifor (International) Inc.-VIT-2022-01879

PATIENT
  Age: 59 Year
  Sex: Male

DRUGS (2)
  1. VELTASSA [Suspect]
     Active Substance: PATIROMER
     Indication: Blood potassium increased
     Dates: start: 20170825
  2. VELTASSA [Suspect]
     Active Substance: PATIROMER

REACTIONS (3)
  - Drug ineffective [Unknown]
  - Product dose omission in error [Unknown]
  - No adverse event [Unknown]
